FAERS Safety Report 24342857 (Version 2)
Quarter: 2024Q4

REPORT INFORMATION
  Report Type: Spontaneous
  Country: US (occurrence: US)
  Receive Date: 20240920
  Receipt Date: 20241022
  Transmission Date: 20250115
  Serious: No
  Sender: BRISTOL-MYERS SQUIBB COMPANY
  Company Number: US-BRISTOL-MYERS SQUIBB COMPANY-2024-149594

PATIENT
  Age: 78 Year
  Sex: Female
  Weight: 109.32 kg

DRUGS (1)
  1. REVLIMID [Suspect]
     Active Substance: LENALIDOMIDE
     Indication: Plasma cell leukaemia
     Route: 048
     Dates: start: 20240801

REACTIONS (4)
  - Diarrhoea [Unknown]
  - Abdominal discomfort [Unknown]
  - Off label use [Unknown]
  - Peripheral swelling [Not Recovered/Not Resolved]
